FAERS Safety Report 8581211-0 (Version None)
Quarter: 2012Q3

REPORT INFORMATION
  Report Type: 
  Country: None (occurrence: None)
  Receive Date: 20120809
  Receipt Date: 20120731
  Transmission Date: 20120928
  Serious: Yes (Hospitalization, Other)
  Sender: FDA-Public Use
  Company Number: IL-JNJFOC-20120106813

PATIENT
  Age: 52 Year
  Sex: Female

DRUGS (1)
  1. REMICADE [Suspect]
     Indication: HIDRADENITIS
     Route: 042

REACTIONS (4)
  - BRONCHOSPASM [None]
  - INFUSION RELATED REACTION [None]
  - HOSPITALISATION [None]
  - DYSPNOEA [None]
